FAERS Safety Report 4845210-4 (Version None)
Quarter: 2005Q4

REPORT INFORMATION
  Report Type: 
  Country: None (occurrence: None)
  Receive Date: 20051115
  Receipt Date: 20050819
  Transmission Date: 20060501
  Serious: Yes (Hospitalization)
  Sender: FDA-Public Use
  Company Number: 415149

PATIENT
  Age: 65 Year
  Sex: Female

DRUGS (2)
  1. PEGASYS [Suspect]
  2. COPEGUS [Suspect]

REACTIONS (4)
  - ASTHENIA [None]
  - DYSURIA [None]
  - PYREXIA [None]
  - URINARY TRACT INFECTION [None]
